FAERS Safety Report 8509488-8 (Version None)
Quarter: 2012Q3

REPORT INFORMATION
  Report Type: 
  Country: None (occurrence: None)
  Receive Date: 20120713
  Receipt Date: 20110321
  Transmission Date: 20120928
  Serious: No
  Sender: FDA-Public Use
  Company Number: US-BAYER-2011-025860

PATIENT
  Sex: Male

DRUGS (1)
  1. MAGNEVIST [Suspect]
     Dosage: 20ML INJECTION
     Route: 042

REACTIONS (1)
  - NO ADVERSE EVENT [None]
